FAERS Safety Report 16737386 (Version 1)
Quarter: 2019Q3

REPORT INFORMATION
  Report Type: Spontaneous
  Country: US (occurrence: US)
  Receive Date: 20190823
  Receipt Date: 20190823
  Transmission Date: 20191005
  Serious: No
  Sender: FDA-Public Use
  Company Number: US-MTPC-MTDA2019-0067791

PATIENT

DRUGS (2)
  1. RADICAVA [Suspect]
     Active Substance: EDARAVONE
     Indication: AMYOTROPHIC LATERAL SCLEROSIS
     Dosage: 60 MILLIGRAM, QD X 14 DAYS
     Route: 042
     Dates: start: 201812
  2. RADICAVA [Suspect]
     Active Substance: EDARAVONE
     Dosage: 60 MILLIGRAM, QD X 10 DAYS
     Route: 042

REACTIONS (1)
  - Muscular weakness [Unknown]
